FAERS Safety Report 20229346 (Version 1)
Quarter: 2021Q4

REPORT INFORMATION
  Report Type: Spontaneous
  Country: DE (occurrence: DE)
  Receive Date: 20211225
  Receipt Date: 20211225
  Transmission Date: 20220303
  Serious: Yes (Hospitalization)
  Sender: FDA-Public Use
  Company Number: DE-ADRED-05761-01

PATIENT
  Age: 62 Year
  Sex: Female
  Weight: 90 kg

DRUGS (5)
  1. GEMCITABINE [Suspect]
     Active Substance: GEMCITABINE
     Dosage: 2364 MG, ON JUNE 2ND, SOLUTION FOR INJECTION / INFUSION
     Route: 042
  2. CISPLATIN [Suspect]
     Active Substance: CISPLATIN
     Dosage: 137.9 MG, ON JUNE 3RD, SOLUTION FOR INJECTION / INFUSION
     Route: 042
  3. ACETYLCYSTEINE [Concomitant]
     Active Substance: ACETYLCYSTEINE
     Dosage: 600 MILLIGRAM DAILY;  1-0-0-0,
     Route: 048
  4. ENOXAPARIN SODIUM [Concomitant]
     Active Substance: ENOXAPARIN SODIUM
     Dosage: 1.6 ML DAILY; 0.8 ML, 1-0-1-0, ,8000I.E. (80MG) / 0.8ML, PRE-FILLED SYRINGES
     Route: 058
  5. ONDANSETRON [Concomitant]
     Active Substance: ONDANSETRON
     Dosage: 4MG, IF NECESSARY,
     Route: 048

REACTIONS (5)
  - Malaise [Recovering/Resolving]
  - Flank pain [Recovering/Resolving]
  - Urosepsis [Recovering/Resolving]
  - Pyrexia [Recovering/Resolving]
  - Hypotension [Recovering/Resolving]
